FAERS Safety Report 5811756-5 (Version None)
Quarter: 2008Q3

REPORT INFORMATION
  Report Type: 
  Country: None (occurrence: None)
  Receive Date: 20080716
  Receipt Date: 20080711
  Transmission Date: 20090109
  Serious: Yes (Other)
  Sender: FDA-Public Use
  Company Number: D0058043A

PATIENT
  Sex: Female

DRUGS (7)
  1. VIANI [Suspect]
     Route: 055
  2. BECLOMETHASONE DIPROPIONATE [Suspect]
     Route: 065
  3. FORMOTEROL FUMERATE [Suspect]
     Route: 065
  4. CIPROFLOXACIN [Concomitant]
     Indication: BRONCHITIS
     Route: 065
  5. SALBUHEXAL [Concomitant]
     Route: 065
  6. GELOMYRTOL [Concomitant]
     Route: 065
  7. CETIRIZIN [Concomitant]
     Route: 065

REACTIONS (3)
  - ASTHMA [None]
  - DYSPHONIA [None]
  - LARYNGITIS [None]
